FAERS Safety Report 11695813 (Version 3)
Quarter: 2016Q3

REPORT INFORMATION
  Report Type: Spontaneous
  Country: US (occurrence: US)
  Receive Date: 20151104
  Receipt Date: 20160826
  Transmission Date: 20161109
  Serious: Yes (Congenital Anomaly, Other)
  Sender: FDA-Public Use
  Company Number: PHEH2015US022356

PATIENT
  Sex: Female

DRUGS (2)
  1. ZOFRAN [Suspect]
     Active Substance: ONDANSETRON HYDROCHLORIDE
     Indication: FOETAL EXPOSURE DURING PREGNANCY
     Route: 064
  2. ONDANSETRON HYDROCHLORIDE. [Suspect]
     Active Substance: ONDANSETRON HYDROCHLORIDE
     Indication: FOETAL EXPOSURE DURING PREGNANCY
     Route: 064

REACTIONS (17)
  - Ear pain [Unknown]
  - Emotional distress [Unknown]
  - Eating disorder [Unknown]
  - Congenital anomaly [Unknown]
  - Anxiety [Unknown]
  - Insomnia [Unknown]
  - Pain [Unknown]
  - Cleft palate [Unknown]
  - Craniofacial deformity [Unknown]
  - Foetal exposure during pregnancy [Unknown]
  - Sinusitis [Unknown]
  - Rhinorrhoea [Unknown]
  - Injury [Unknown]
  - Nasal obstruction [Unknown]
  - Speech disorder [Unknown]
  - Anhedonia [Unknown]
  - Developmental delay [Unknown]
